FAERS Safety Report 7907652-X (Version None)
Quarter: 2011Q4

REPORT INFORMATION
  Report Type: 
  Country: None (occurrence: None)
  Receive Date: 20111110
  Receipt Date: 20111109
  Transmission Date: 20120403
  Serious: Yes (Death, Other)
  Sender: FDA-Public Use
  Company Number: AU-B.I. PHARMACEUTICALS,INC./RIDGEFIELD-2011-AU-01493AU

PATIENT
  Sex: Male
  Weight: 119 kg

DRUGS (6)
  1. AMIODARONE HCL [Concomitant]
  2. IV ANAESTHESIA [Concomitant]
     Indication: SURGERY
  3. PRADAXA [Suspect]
     Dosage: 220 MG
  4. NEXIUM [Concomitant]
  5. PANADOL OSTEO [Concomitant]
  6. COAD INHALERS [Concomitant]
     Indication: CHRONIC OBSTRUCTIVE PULMONARY DISEASE

REACTIONS (2)
  - NECROTISING FASCIITIS [None]
  - RENAL FAILURE [None]
